FAERS Safety Report 9275003 (Version 1)
Quarter: 2013Q2

REPORT INFORMATION
  Report Type: Spontaneous
  Country: CO (occurrence: CO)
  Receive Date: 20130507
  Receipt Date: 20130507
  Transmission Date: 20140414
  Serious: Yes (Hospitalization, Other)
  Sender: FDA-Public Use
  Company Number: CO-ASTELLAS-2013US004618

PATIENT
  Sex: Male

DRUGS (2)
  1. PROGRAF [Suspect]
     Indication: LIVER TRANSPLANT
     Dosage: 4 MG, Q12 HOURS
     Route: 048
     Dates: start: 2006, end: 20130419
  2. MYFORTIC [Concomitant]
     Indication: PRODUCT USED FOR UNKNOWN INDICATION
     Dosage: UNK
     Route: 065

REACTIONS (2)
  - Drug dose omission [Unknown]
  - Road traffic accident [Recovering/Resolving]
